FAERS Safety Report 17994194 (Version 1)
Quarter: 2020Q3

REPORT INFORMATION
  Report Type: Spontaneous
  Country: US (occurrence: US)
  Receive Date: 20200708
  Receipt Date: 20200708
  Transmission Date: 20201103
  Serious: Yes (Hospitalization)
  Sender: FDA-Public Use
  Company Number: US-CADILA HEALTHCARE LIMITED-US-ZYDUS-052575

PATIENT

DRUGS (8)
  1. DIAZEPAM. [Suspect]
     Active Substance: DIAZEPAM
     Indication: ELECTROCARDIOGRAM QRS COMPLEX PROLONGED
     Dosage: 1 MILLIGRAM/KILOGRAM OVER 30 MINUTES
     Route: 040
  2. METHOTREXATE TAB 2.5MG [Suspect]
     Active Substance: METHOTREXATE
     Indication: PRODUCT USED FOR UNKNOWN INDICATION
     Dosage: 2.5 MILLIGRAM (30 TABLETS)
     Route: 048
  3. PREDNISONE. [Suspect]
     Active Substance: PREDNISONE
     Indication: PRODUCT USED FOR UNKNOWN INDICATION
     Dosage: 10 MILLIGRAM (30 TABLET)
     Route: 065
  4. DIAZEPAM. [Suspect]
     Active Substance: DIAZEPAM
     Dosage: 39 MILLIGRAM EVERY 2 HOURS
     Route: 040
  5. DIAZEPAM. [Suspect]
     Active Substance: DIAZEPAM
     Dosage: 5 MILLIGRAM
     Route: 042
  6. DIAZEPAM. [Suspect]
     Active Substance: DIAZEPAM
     Dosage: 80 MILLIGRAM
     Route: 040
  7. HYDROXYCHLOROQUINE SULFATE TABLET [Suspect]
     Active Substance: HYDROXYCHLOROQUINE SULFATE
     Indication: PRODUCT USED FOR UNKNOWN INDICATION
     Dosage: 200 MILLIGRAM (20 TABLETS)
     Route: 048
  8. DIAZEPAM. [Suspect]
     Active Substance: DIAZEPAM
     Dosage: 6.5 MILLIGRAM EVERY 2 HOURS
     Route: 040

REACTIONS (12)
  - Nausea [Unknown]
  - Somnolence [Unknown]
  - Asthenia [Unknown]
  - Platelet count decreased [Unknown]
  - Ventricular tachycardia [Unknown]
  - Intentional overdose [Unknown]
  - Electrocardiogram QT prolonged [Recovering/Resolving]
  - Hypokalaemia [Unknown]
  - Electrocardiogram QRS complex prolonged [Recovering/Resolving]
  - Suicide attempt [Unknown]
  - Vomiting [Unknown]
  - Haemoglobin decreased [Unknown]
